FAERS Safety Report 4357978-4 (Version None)
Quarter: 2004Q2

REPORT INFORMATION
  Report Type: 
  Country: None (occurrence: None)
  Receive Date: 20040510
  Receipt Date: 20040203
  Transmission Date: 20050107
  Serious: Yes (Other)
  Sender: FDA-Public Use
  Company Number: 2004-UK-00113UK

PATIENT
  Age: 65 Year
  Sex: Female

DRUGS (1)
  1. MICARDIS [Suspect]

REACTIONS (2)
  - FAECAL OCCULT BLOOD POSITIVE [None]
  - IRON DEFICIENCY ANAEMIA [None]
